FAERS Safety Report 10074998 (Version 1)
Quarter: 2014Q2

REPORT INFORMATION
  Report Type: Spontaneous
  Country: US (occurrence: US)
  Receive Date: 20140414
  Receipt Date: 20140414
  Transmission Date: 20141212
  Serious: No
  Sender: FDA-Public Use
  Company Number: US-BIOGENIDEC-2014BI028643

PATIENT
  Age: 34 Year
  Sex: Female

DRUGS (4)
  1. TECFIDERA [Suspect]
     Indication: MULTIPLE SCLEROSIS
     Route: 048
     Dates: start: 201309
  2. BACLOFEN [Concomitant]
     Indication: PRODUCT USED FOR UNKNOWN INDICATION
  3. PENICILLIN [Concomitant]
     Indication: STREPTOCOCCAL INFECTION
     Dates: start: 20140306
  4. PENICILLIN [Concomitant]
     Indication: IMPAIRED HEALING
     Dates: start: 20140306

REACTIONS (4)
  - Urticaria [Unknown]
  - Eye swelling [Unknown]
  - Arthritis [Unknown]
  - Flushing [Unknown]
